FAERS Safety Report 9400217 (Version 1)
Quarter: 2013Q3

REPORT INFORMATION
  Report Type: Spontaneous
  Country: US (occurrence: US)
  Receive Date: 20130715
  Receipt Date: 20130715
  Transmission Date: 20140515
  Serious: No
  Sender: FDA-Public Use
  Company Number: US-US-EMD SERONO, INC.-7079862

PATIENT
  Sex: Female
  Weight: 58 kg

DRUGS (9)
  1. REBIF [Suspect]
     Indication: PRODUCT USED FOR UNKNOWN INDICATION
     Route: 058
     Dates: start: 20110816
  2. REBIF [Suspect]
     Route: 058
  3. REBIF [Suspect]
     Route: 058
  4. PERCOCET [Concomitant]
     Indication: NEUROPATHY PERIPHERAL
  5. PERCOCET [Concomitant]
     Indication: PAIN IN EXTREMITY
  6. CYMBALTA [Concomitant]
     Indication: DEPRESSION
  7. CYMBALTA [Concomitant]
     Indication: ANXIETY
  8. KLONOPIN [Concomitant]
     Indication: DEPRESSION
  9. KLONOPIN [Concomitant]
     Indication: ANXIETY

REACTIONS (12)
  - Nausea [Unknown]
  - Skin discolouration [Not Recovered/Not Resolved]
  - Feeling abnormal [Not Recovered/Not Resolved]
  - Dyspnoea [Unknown]
  - Decreased appetite [Not Recovered/Not Resolved]
  - Weight decreased [Unknown]
  - Abdominal distension [Recovered/Resolved]
  - Multiple sclerosis [Not Recovered/Not Resolved]
  - Hypoaesthesia [Not Recovered/Not Resolved]
  - Injection site erythema [Recovered/Resolved]
  - Injection site bruising [Recovered/Resolved]
  - Influenza like illness [Not Recovered/Not Resolved]
